FAERS Safety Report 6554628-3 (Version None)
Quarter: 2010Q1

REPORT INFORMATION
  Report Type: 
  Country: None (occurrence: None)
  Receive Date: 20100127
  Receipt Date: 20100115
  Transmission Date: 20100710
  Serious: Yes (Other)
  Sender: FDA-Public Use
  Company Number: FR-PFIZER INC-2010005835

PATIENT
  Sex: Male

DRUGS (5)
  1. ZOLOFT [Suspect]
  2. DEPAKENE [Concomitant]
  3. RIVOTRIL [Concomitant]
  4. RISPERDAL [Concomitant]
  5. ATARAX [Concomitant]

REACTIONS (1)
  - NEUTROPENIA [None]
